FAERS Safety Report 11349646 (Version 2)
Quarter: 2015Q3

REPORT INFORMATION
  Report Type: Spontaneous
  Country: CH (occurrence: CH)
  Receive Date: 20150807
  Receipt Date: 20150813
  Transmission Date: 20151125
  Serious: Yes (Death, Other)
  Sender: FDA-Public Use
  Company Number: PHHY2015CH093712

PATIENT
  Age: 27 Year
  Sex: Female
  Weight: 35 kg

DRUGS (6)
  1. MYCOPHENOLATE MOFETIL. [Suspect]
     Active Substance: MYCOPHENOLATE MOFETIL
     Indication: IMMUNOSUPPRESSION
  2. PREDNISONE. [Suspect]
     Active Substance: PREDNISONE
     Indication: LUNG TRANSPLANT
     Dosage: 5 MG, ((MAINTENANCE DOSE 0.1 MG/KG/ DAY)
     Route: 023
  3. MYCOPHENOLATE MOFETIL. [Suspect]
     Active Substance: MYCOPHENOLATE MOFETIL
     Indication: LUNG TRANSPLANT
     Dosage: 1000 MG, BID
     Route: 065
  4. CICLOSPORIN [Suspect]
     Active Substance: CYCLOSPORINE
     Indication: IMMUNOSUPPRESSION
  5. PREDNISONE. [Suspect]
     Active Substance: PREDNISONE
     Indication: IMMUNOSUPPRESSION
  6. CICLOSPORIN [Suspect]
     Active Substance: CYCLOSPORINE
     Indication: LUNG TRANSPLANT
     Dosage: UNK
     Route: 065

REACTIONS (13)
  - Constipation [Unknown]
  - Immunosuppressant drug level decreased [Unknown]
  - Right ventricular failure [Fatal]
  - Hepatic lesion [Unknown]
  - Pulmonary embolism [Fatal]
  - Hilar lymphadenopathy [Unknown]
  - Adenocarcinoma gastric [Unknown]
  - Abdominal pain upper [Unknown]
  - Retroperitoneal lymphadenopathy [Unknown]
  - Gastritis [Unknown]
  - Venous thrombosis [Unknown]
  - Fibrosis [Unknown]
  - Hypercoagulation [Unknown]

NARRATIVE: CASE EVENT DATE: 201308
